FAERS Safety Report 7117208-7 (Version None)
Quarter: 2010Q4

REPORT INFORMATION
  Report Type: 
  Country: None (occurrence: None)
  Receive Date: 20101122
  Receipt Date: 20101110
  Transmission Date: 20110411
  Serious: Yes (Hospitalization, Other)
  Sender: FDA-Public Use
  Company Number: PHHY2010US49756

PATIENT
  Sex: Female

DRUGS (11)
  1. TEGRETOL [Suspect]
     Indication: CONVULSION
     Dosage: 200 MG, TID
  2. METFORMIN [Suspect]
     Indication: DIABETES MELLITUS
     Dosage: UNK
  3. LANTUS [Suspect]
     Indication: TYPE 2 DIABETES MELLITUS
     Dosage: 30 U, QD
     Dates: start: 20040101
  4. LANTUS [Suspect]
     Dosage: 40 U, QD
  5. OPTICLIK BLUE [Suspect]
     Dosage: UNK
     Dates: start: 20040101
  6. EPITOL [Suspect]
     Indication: CONVULSION
     Dosage: 200 MG, TID
     Route: 048
     Dates: start: 20100123, end: 20100124
  7. LEVOFLOXACIN [Concomitant]
     Dosage: 75 MG, DAILY
  8. PRAVACHOL [Concomitant]
     Dosage: 80 MG AT BEDTIME
  9. ASPIRIN [Concomitant]
     Dosage: 325 MG, ONCE A DAY
  10. ASCORBIC ACID [Concomitant]
     Dosage: 150 MG, BID
  11. PLAVIX [Concomitant]
     Dosage: 75 MG ONCE A DAY
     Route: 048

REACTIONS (12)
  - APHASIA [None]
  - ARTERIOSCLEROSIS [None]
  - BLOOD THYROID STIMULATING HORMONE DECREASED [None]
  - CEREBRAL ISCHAEMIA [None]
  - CEREBROVASCULAR ACCIDENT [None]
  - CONVULSION [None]
  - DIZZINESS [None]
  - GAIT DISTURBANCE [None]
  - HEADACHE [None]
  - HEMIPLEGIA [None]
  - RENAL FUNCTION TEST ABNORMAL [None]
  - VISION BLURRED [None]
